FAERS Safety Report 4633311-5 (Version None)
Quarter: 2005Q2

REPORT INFORMATION
  Report Type: 
  Country: None (occurrence: None)
  Receive Date: 20050412
  Receipt Date: 20050329
  Transmission Date: 20051028
  Serious: Yes (Hospitalization, Other)
  Sender: FDA-Public Use
  Company Number: 2005051514

PATIENT
  Age: 55 Year
  Sex: Male
  Weight: 90.7194 kg

DRUGS (3)
  1. CELEBREX [Suspect]
     Indication: ARTHRALGIA
     Dosage: 200 MG (200 MG, 1 IN 1 D), ORAL
     Route: 048
     Dates: start: 20020101
  2. CELEBREX [Suspect]
     Indication: BACK PAIN
     Dosage: 200 MG (200 MG, 1 IN 1 D), ORAL
     Route: 048
     Dates: start: 20020101
  3. PAROXETINE HCL [Concomitant]

REACTIONS (17)
  - BACK PAIN [None]
  - BACTERAEMIA [None]
  - BONE DISORDER [None]
  - BONE INFECTION [None]
  - CARDIAC INFECTION [None]
  - CONGENITAL CYSTIC KIDNEY DISEASE [None]
  - CONSTIPATION [None]
  - DECREASED ACTIVITY [None]
  - DYSSTASIA [None]
  - ERYTHEMA [None]
  - FLANK PAIN [None]
  - GASTROINTESTINAL DISORDER [None]
  - MONOPLEGIA [None]
  - OPHTHALMOPLEGIA [None]
  - ORAL INTAKE REDUCED [None]
  - PAIN IN EXTREMITY [None]
  - WEIGHT DECREASED [None]
